FAERS Safety Report 5233359-6 (Version None)
Quarter: 2007Q1

REPORT INFORMATION
  Report Type: 
  Country: None (occurrence: None)
  Receive Date: 20070206
  Receipt Date: 20070206
  Transmission Date: 20070707
  Serious: Yes (Disabling)
  Sender: FDA-Public Use
  Company Number: None

PATIENT
  Age: 44 Year
  Sex: Female

DRUGS (1)
  1. ZICAM COLD REMEDY NASAL GEL  ZINCUM GLUCONICUM ZICAM/MATRIXX 2X [Suspect]
     Indication: NASOPHARYNGITIS
     Dosage: NO DIRECTIONS ARE GIVEN BOTTLE DOESN'T SAY
     Dates: start: 20070128, end: 20070128

REACTIONS (5)
  - ABNORMAL SENSATION IN EYE [None]
  - EYE IRRITATION [None]
  - EYE PAIN [None]
  - NASAL DISCOMFORT [None]
  - RHINALGIA [None]
